FAERS Safety Report 8917405 (Version 2)
Quarter: 2012Q4

REPORT INFORMATION
  Report Type: 
  Country: SE (occurrence: SE)
  Receive Date: 20121119
  Receipt Date: 20121129
  Transmission Date: 20130627
  Serious: Yes (Hospitalization)
  Sender: FDA-Public Use
  Company Number: SE-B.I. PHARMACEUTICALS,INC./RIDGEFIELD-2012-SW-00832SW

PATIENT
  Age: 65 Year
  Sex: Male

DRUGS (2)
  1. PRADAXA [Suspect]
     Indication: CEREBROVASCULAR ACCIDENT
     Dosage: Strength: 110 mg
     Dates: start: 20120516
  2. PRADAXA [Suspect]
     Indication: ATRIAL FIBRILLATION

REACTIONS (8)
  - Infection [Recovered/Resolved]
  - Renal failure [Recovered/Resolved]
  - Lung neoplasm malignant [Unknown]
  - Pneumonia [Unknown]
  - Fatigue [Unknown]
  - Cough [Unknown]
  - Chest pain [Unknown]
  - Abdominal pain [Unknown]
